FAERS Safety Report 8520780-3 (Version None)
Quarter: 2012Q2

REPORT INFORMATION
  Report Type: 
  Country: None (occurrence: None)
  Receive Date: 20120409
  Receipt Date: 20120116
  Transmission Date: 20120825
  Serious: Yes (Other)
  Sender: FDA-Public Use
  Company Number: PHEH2012US001360

PATIENT
  Age: 81 Year
  Sex: Female

DRUGS (9)
  1. DIOVAN [Suspect]
     Indication: BLOOD PRESSURE ABNORMAL
  2. VALTURNA [Suspect]
     Indication: BLOOD PRESSURE ABNORMAL
     Dosage: 1 DF, QD, ORAL
     Route: 048
  3. GLIPIZIDE [Concomitant]
  4. AMTURNIDE [Suspect]
     Indication: BLOOD PRESSURE ABNORMAL
     Dosage: SEE IMAGE
     Route: 048
  5. LEVAQUIN [Suspect]
     Indication: EAR OPERATION
  6. CIPRODEX (CIPROFLOXACIN HYDROCHLORIDE) [Concomitant]
  7. ZITHROMAX [Concomitant]
  8. UNKNOWN BLOOD PRESSURE MEDICATION (UNKNOWN BLOOD PRESSURE MEDICATION) [Suspect]
     Indication: BLOOD PRESSURE ABNORMAL
  9. UNKNOWN CHOLESTEROL MEDICATION (UNKNOWN CHOLESTEROL MEDICATION) [Concomitant]

REACTIONS (5)
  - DYSSTASIA [None]
  - BLOOD PRESSURE FLUCTUATION [None]
  - MALAISE [None]
  - MUSCULAR WEAKNESS [None]
  - NASOPHARYNGITIS [None]
